FAERS Safety Report 6774027-9 (Version None)
Quarter: 2010Q2

REPORT INFORMATION
  Report Type: 
  Country: None (occurrence: None)
  Receive Date: 20100617
  Receipt Date: 20100603
  Transmission Date: 20101027
  Serious: Yes (Hospitalization, Other)
  Sender: FDA-Public Use
  Company Number: US-RB-011643-10

PATIENT
  Age: 19 Year
  Sex: Male
  Weight: 75.15 kg

DRUGS (1)
  1. DELSYM COUGH SYRUP [Suspect]
     Dosage: DRINK ONE BOTTLE AT A TIME, ABUSED THIS PRODUCT FOR A 2 WEEK PERIOD
     Route: 048

REACTIONS (6)
  - CONFUSIONAL STATE [None]
  - DISORIENTATION [None]
  - DRUG ABUSE [None]
  - DYSARTHRIA [None]
  - HALLUCINATION [None]
  - RENAL DISORDER [None]
